FAERS Safety Report 18055699 (Version 1)
Quarter: 2020Q3

REPORT INFORMATION
  Report Type: Spontaneous
  Country: GB (occurrence: GB)
  Receive Date: 20200722
  Receipt Date: 20200722
  Transmission Date: 20201103
  Serious: Yes (Disabling)
  Sender: FDA-Public Use
  Company Number: GB-ASCEND THERAPEUTICS US, LLC-2087613

PATIENT
  Age: 51 Year
  Sex: Female
  Weight: 65 kg

DRUGS (3)
  1. ESTROGEL [Suspect]
     Active Substance: ESTRADIOL
  2. ESTROGEL [Suspect]
     Active Substance: ESTRADIOL
     Indication: HORMONE REPLACEMENT THERAPY
     Dates: start: 20200527
  3. OESTRODOSE (ESTRADIOL) [Suspect]
     Active Substance: ESTRADIOL
     Dates: start: 20200527

REACTIONS (5)
  - Drug ineffective [Not Recovered/Not Resolved]
  - Product dispensing error [Unknown]
  - Product substitution issue [Unknown]
  - Menopausal symptoms [Not Recovered/Not Resolved]
  - Product label on wrong product [Unknown]

NARRATIVE: CASE EVENT DATE: 20200527
